FAERS Safety Report 8373049-4 (Version None)
Quarter: 2012Q2

REPORT INFORMATION
  Report Type: 
  Country: None (occurrence: None)
  Receive Date: 20120521
  Receipt Date: 20120511
  Transmission Date: 20120825
  Serious: Yes (Other)
  Sender: FDA-Public Use
  Company Number: US-MYLANLABS-2011S1022077

PATIENT
  Sex: Male
  Weight: 0.43 kg

DRUGS (5)
  1. RITONAVIR [Suspect]
     Route: 064
  2. ZIDOVUDINE [Suspect]
     Route: 064
  3. LOPINAVIR/RITONAVIR [Suspect]
     Route: 064
  4. DARUNAVIR HYDRATE [Suspect]
     Route: 064
  5. LAMIVUDINE + ZIDOVUDINE [Suspect]
     Route: 064

REACTIONS (4)
  - MATERNAL DRUGS AFFECTING FOETUS [None]
  - FOETAL GROWTH RESTRICTION [None]
  - PREMATURE BABY [None]
  - MATERNAL EXPOSURE DURING PREGNANCY [None]
